FAERS Safety Report 12281918 (Version 1)
Quarter: 2016Q2

REPORT INFORMATION
  Report Type: Spontaneous
  Country: US (occurrence: None)
  Receive Date: 20160418
  Receipt Date: 20160418
  Transmission Date: 20160815
  Serious: Yes (Other)
  Sender: FDA-Public Use
  Company Number: None

PATIENT
  Age: 51 Year
  Sex: Female
  Weight: 71.22 kg

DRUGS (3)
  1. CIPROFLOXACIN WEST WARD INC [Suspect]
     Active Substance: CIPROFLOXACIN
     Indication: GASTROINTESTINAL INFECTION
     Dosage: 20 TABLET(S) EVERY 12 HOURS
     Route: 048
     Dates: start: 20150707
  2. MULTI VITAMIN [Concomitant]
     Active Substance: VITAMINS
  3. TURMERIC [Concomitant]
     Active Substance: TURMERIC

REACTIONS (11)
  - Depression [None]
  - Myalgia [None]
  - Joint crepitation [None]
  - Arthralgia [None]
  - Activities of daily living impaired [None]
  - Bursitis [None]
  - Musculoskeletal disorder [None]
  - Insomnia [None]
  - Tendon pain [None]
  - Joint stiffness [None]
  - Tendonitis [None]

NARRATIVE: CASE EVENT DATE: 20151115
